FAERS Safety Report 8041722-3 (Version None)
Quarter: 2012Q1

REPORT INFORMATION
  Report Type: 
  Country: None (occurrence: None)
  Receive Date: 20120112
  Receipt Date: 20120104
  Transmission Date: 20120608
  Serious: Yes (Other)
  Sender: FDA-Public Use
  Company Number: CN-ASTELLAS-2012JP000189

PATIENT
  Weight: 36 kg

DRUGS (1)
  1. MICAFUNGIN [Suspect]
     Indication: LUNG INFECTION
     Route: 065

REACTIONS (1)
  - CARDIAC FAILURE ACUTE [None]
